FAERS Safety Report 19031498 (Version 1)
Quarter: 2021Q1

REPORT INFORMATION
  Report Type: Spontaneous
  Country: US (occurrence: US)
  Receive Date: 20210319
  Receipt Date: 20210319
  Transmission Date: 20210420
  Serious: No
  Sender: FDA-Public Use
  Company Number: US-BEH-2021129382

PATIENT
  Age: 58 Year
  Sex: Female

DRUGS (1)
  1. HIZENTRA [Suspect]
     Active Substance: HUMAN IMMUNOGLOBULIN G
     Indication: IMMUNOGLOBULINS ABNORMAL
     Dosage: 25 GRAM, QW
     Route: 058
     Dates: start: 2015

REACTIONS (6)
  - Infusion site pruritus [Recovering/Resolving]
  - Infusion site warmth [Recovering/Resolving]
  - Urticaria [Unknown]
  - Infusion site pain [Unknown]
  - Infusion site erythema [Not Recovered/Not Resolved]
  - Infusion site swelling [Unknown]

NARRATIVE: CASE EVENT DATE: 2015
